FAERS Safety Report 8427928 (Version 3)
Quarter: 2012Q4

REPORT INFORMATION
  Report Type: Report from Study
  Country: AT (occurrence: AT)
  Receive Date: 20120227
  Receipt Date: 20121207
  Transmission Date: 20130627
  Serious: Yes (Death, Hospitalization)
  Sender: FDA-Public Use
  Company Number: AT-CELGENEUS-009-21880-12020527

PATIENT
  Age: 85 Year
  Sex: Male

DRUGS (2)
  1. REVLIMID [Suspect]
     Indication: MYELOMA
     Route: 048
     Dates: start: 20111021, end: 20120202
  2. DEXAMETHASONE [Suspect]
     Indication: MYELOMA
     Route: 065
     Dates: start: 20111021, end: 20120127

REACTIONS (2)
  - Neutropenia [Recovered/Resolved]
  - Myocardial infarction [Fatal]
